FAERS Safety Report 10687402 (Version 1)
Quarter: 2014Q4

REPORT INFORMATION
  Report Type: Spontaneous
  Country: US (occurrence: None)
  Receive Date: 20141231
  Receipt Date: 20141231
  Transmission Date: 20150529
  Serious: No
  Sender: FDA-Public Use
  Company Number: None

PATIENT
  Age: 55 Year
  Sex: Female

DRUGS (7)
  1. AMPYRA [Suspect]
     Active Substance: DALFAMPRIDINE
     Indication: MULTIPLE SCLEROSIS
     Route: 048
     Dates: start: 20141020
  2. FAMOTIDINE. [Concomitant]
     Active Substance: FAMOTIDINE
  3. TACROLIMUS OINTMENT [Concomitant]
     Active Substance: TACROLIMUS
  4. REBIF [Concomitant]
     Active Substance: INTERFERON BETA-1A
  5. BACLOFEN. [Concomitant]
     Active Substance: BACLOFEN
  6. MIRVASO [Concomitant]
     Active Substance: BRIMONIDINE TARTRATE
  7. CITALOPRAM [Concomitant]
     Active Substance: CITALOPRAM HYDROBROMIDE

REACTIONS (4)
  - Urine odour abnormal [None]
  - Musculoskeletal discomfort [None]
  - Urine abnormality [None]
  - Abdominal discomfort [None]

NARRATIVE: CASE EVENT DATE: 20141117
